FAERS Safety Report 20069991 (Version 1)
Quarter: 2021Q4

REPORT INFORMATION
  Report Type: Spontaneous
  Country: GB (occurrence: GB)
  Receive Date: 20211115
  Receipt Date: 20211115
  Transmission Date: 20220304
  Serious: Yes (Hospitalization, Other)
  Sender: FDA-Public Use
  Company Number: GB-NOVARTISPH-NVSC2021GB253083

PATIENT
  Age: 47 Year
  Sex: Female

DRUGS (9)
  1. MIDOSTAURIN [Suspect]
     Active Substance: MIDOSTAURIN
     Indication: Acute myeloid leukaemia
     Dosage: UNK UNK, CYCLIC (CYCLE 1)
     Route: 065
     Dates: start: 20210719, end: 20210720
  2. MIDOSTAURIN [Suspect]
     Active Substance: MIDOSTAURIN
     Dosage: UNK UNK, CYCLIC (CYCLE 2)
     Route: 065
     Dates: start: 20210823, end: 20210905
  3. MIDOSTAURIN [Suspect]
     Active Substance: MIDOSTAURIN
     Dosage: UNK UNK, CYCLIC (CYCLE 3)
     Route: 065
     Dates: start: 20211005, end: 20211018
  4. CYTARABINE [Suspect]
     Active Substance: CYTARABINE
     Indication: Acute myeloid leukaemia
     Dosage: UNK UNK, CYCLIC (CYCLE 1)
     Route: 065
     Dates: start: 20210709, end: 20210718
  5. CYTARABINE [Suspect]
     Active Substance: CYTARABINE
     Dosage: UNK UNK, CYCLIC (CYCLE 2)
     Route: 065
     Dates: start: 20210813, end: 20210820
  6. CYTARABINE [Suspect]
     Active Substance: CYTARABINE
     Dosage: UNK UNK, CYCLIC (CYCLE 3)
     Route: 065
     Dates: start: 20210928, end: 20211002
  7. DAUNORUBICIN [Suspect]
     Active Substance: DAUNORUBICIN
     Indication: Acute myeloid leukaemia
     Dosage: UNK UNK, CYCLIC (CYCLE 1)
     Route: 065
     Dates: start: 20210709, end: 20210713
  8. DAUNORUBICIN [Suspect]
     Active Substance: DAUNORUBICIN
     Dosage: UNK UNK, CYCLIC (CYCLE 2)
     Route: 065
     Dates: start: 20210813, end: 20210817
  9. MYLOTARG [Suspect]
     Active Substance: GEMTUZUMAB OZOGAMICIN
     Indication: Acute myeloid leukaemia
     Dosage: 3 MG/M2 (OVER A 2 HOURS PERIOD (AS PER SMPC)
     Route: 041
     Dates: start: 20210709, end: 20210709

REACTIONS (11)
  - Pneumonia [Recovered/Resolved]
  - Cough [Unknown]
  - Oedema peripheral [Unknown]
  - C-reactive protein increased [Unknown]
  - Pyrexia [Unknown]
  - Thrombocytopenia [Unknown]
  - Neutropenia [Unknown]
  - Aspiration [Unknown]
  - Incontinence [Unknown]
  - Haematuria [Unknown]
  - Vomiting [Unknown]

NARRATIVE: CASE EVENT DATE: 20211001
